FAERS Safety Report 14590765 (Version 1)
Quarter: 2018Q1

REPORT INFORMATION
  Report Type: Spontaneous
  Country: US (occurrence: US)
  Receive Date: 20180302
  Receipt Date: 20180302
  Transmission Date: 20180509
  Serious: No
  Sender: FDA-Public Use
  Company Number: US-JNJFOC-20180215771

PATIENT
  Age: 1 Year
  Sex: Male

DRUGS (2)
  1. CHILDRENS TYLENOL [Suspect]
     Active Substance: ACETAMINOPHEN
     Indication: ACCIDENTAL EXPOSURE TO PRODUCT
     Dosage: MOTHER GAVE 3.75ML, 10MINUTES LATER, FATHER ALSO GAVE 3.75ML ??GIVEN IT
     Route: 048
     Dates: start: 20180208
  2. CHILDRENS TYLENOL [Suspect]
     Active Substance: ACETAMINOPHEN
     Indication: PYREXIA
     Dosage: MOTHER GAVE 3.75ML, 10MINUTES LATER, FATHER ALSO GAVE 3.75ML ??GIVEN IT
     Route: 048
     Dates: start: 20180208

REACTIONS (2)
  - Extra dose administered [Unknown]
  - Hypersomnia [Unknown]

NARRATIVE: CASE EVENT DATE: 20180208
